FAERS Safety Report 9394948 (Version 1)
Quarter: 2013Q3

REPORT INFORMATION
  Report Type: Spontaneous
  Country: LT (occurrence: None)
  Receive Date: 20130705
  Receipt Date: 20130705
  Transmission Date: 20140515
  Serious: No
  Sender: FDA-Public Use
  Company Number: FK201302299

PATIENT
  Age: 23 Year
  Sex: Male

DRUGS (3)
  1. METHYLPREDNISOLONE [Suspect]
     Indication: IMMUNOSUPPRESSION
  2. CYCLOSPORINE (CICLOSPORIN) [Suspect]
     Indication: IMMUNOSUPPRESSION
  3. AZATHIOPRINE [Suspect]

REACTIONS (4)
  - Testicular germ cell cancer metastatic [None]
  - Febrile neutropenia [None]
  - Anaemia [None]
  - Thrombocytopenia [None]
